FAERS Safety Report 7768656-3 (Version None)
Quarter: 2011Q3

REPORT INFORMATION
  Report Type: 
  Country: None (occurrence: None)
  Receive Date: 20110922
  Receipt Date: 20101203
  Transmission Date: 20111222
  Serious: Yes (Hospitalization)
  Sender: FDA-Public Use
  Company Number: US-ASTRAZENECA-2010SE57551

PATIENT
  Sex: Male

DRUGS (2)
  1. HALDOL [Concomitant]
  2. SEROQUEL XR [Suspect]
     Indication: SCHIZOPHRENIA
     Route: 048

REACTIONS (2)
  - PSYCHOTIC DISORDER [None]
  - DRUG INEFFECTIVE [None]
